FAERS Safety Report 8170266-3 (Version None)
Quarter: 2012Q1

REPORT INFORMATION
  Report Type: 
  Country: None (occurrence: None)
  Receive Date: 20120228
  Receipt Date: 20120217
  Transmission Date: 20120608
  Serious: Yes (Hospitalization, Other)
  Sender: FDA-Public Use
  Company Number: US-BAYER-2011-091238

PATIENT
  Age: 24 Year
  Sex: Female
  Weight: 60.317 kg

DRUGS (1)
  1. YASMIN [Suspect]
     Indication: CONTRACEPTION
     Dosage: UNK
     Dates: start: 20060101

REACTIONS (8)
  - ANXIETY [None]
  - GENERAL PHYSICAL HEALTH DETERIORATION [None]
  - DEEP VEIN THROMBOSIS [None]
  - INTRACRANIAL VENOUS SINUS THROMBOSIS [None]
  - PAIN [None]
  - CONVULSION [None]
  - ANHEDONIA [None]
  - EMOTIONAL DISTRESS [None]
